FAERS Safety Report 4318029-0 (Version None)
Quarter: 2004Q1

REPORT INFORMATION
  Report Type: 
  Country: None (occurrence: None)
  Receive Date: 20040317
  Receipt Date: 20031205
  Transmission Date: 20041129
  Serious: Yes (Other)
  Sender: FDA-Public Use
  Company Number: 200314622FR

PATIENT
  Sex: Female

DRUGS (7)
  1. ARAVA [Suspect]
     Indication: RHEUMATOID ARTHRITIS
     Route: 048
  2. VFEND [Suspect]
     Indication: SYSTEMIC CANDIDA
     Route: 048
     Dates: start: 20031101, end: 20031204
  3. CREON [Concomitant]
     Indication: CYSTIC FIBROSIS PANCREATIC
     Route: 048
  4. HYDROCORTISONE [Concomitant]
     Indication: ADRENAL INSUFFICIENCY
  5. MOPRAL [Concomitant]
     Route: 048
  6. VITAMIN B1 AND B6 [Concomitant]
     Route: 048
  7. CYSTINE [Concomitant]
     Route: 048

REACTIONS (4)
  - ACQUIRED METHAEMOGLOBINAEMIA [None]
  - DYSPNOEA [None]
  - OXYGEN SATURATION DECREASED [None]
  - SYSTEMIC CANDIDA [None]
